FAERS Safety Report 9435119 (Version 1)
Quarter: 2013Q3

REPORT INFORMATION
  Report Type: Spontaneous
  Country: US (occurrence: US)
  Receive Date: 20130801
  Receipt Date: 20130801
  Transmission Date: 20140515
  Serious: Yes (Life-Threatening)
  Sender: FDA-Public Use
  Company Number: CHPA2013US012077

PATIENT
  Age: 50 Year
  Sex: Male

DRUGS (3)
  1. BUCKLEY^S UNKNOWN [Suspect]
     Indication: PAIN
     Dosage: A SWIG FROM THE BOTTLE
     Route: 048
     Dates: start: 1998, end: 20130728
  2. BUCKLEY^S UNKNOWN [Suspect]
     Indication: DYSPNOEA
  3. BUCKLEY^S UNKNOWN [Suspect]
     Indication: COUGH

REACTIONS (6)
  - Feeling abnormal [Unknown]
  - Dyspnoea [Unknown]
  - Cough [Unknown]
  - Pain [Unknown]
  - Off label use [Unknown]
  - Wrong technique in drug usage process [Unknown]
